FAERS Safety Report 23084888 (Version 1)
Quarter: 2023Q4

REPORT INFORMATION
  Report Type: Spontaneous
  Country: FR (occurrence: FR)
  Receive Date: 20231019
  Receipt Date: 20231019
  Transmission Date: 20240109
  Serious: Yes (Hospitalization)
  Sender: FDA-Public Use
  Company Number: FR-SUN PHARMACEUTICAL INDUSTRIES LTD-2023RR-413201

PATIENT
  Age: 65 Year
  Sex: Male
  Weight: 71 kg

DRUGS (5)
  1. ESOMEPRAZOLE [Suspect]
     Active Substance: ESOMEPRAZOLE
     Indication: Product used for unknown indication
     Dosage: UNK
     Route: 065
     Dates: start: 20230103, end: 20230110
  2. AZITHROMYCIN [Suspect]
     Active Substance: AZITHROMYCIN
     Indication: Influenza like illness
     Dosage: UNK
     Route: 048
     Dates: start: 20230103, end: 20230110
  3. OXOMEMAZINE [Suspect]
     Active Substance: OXOMEMAZINE
     Indication: Influenza like illness
     Dosage: UNK
     Route: 065
     Dates: start: 20230103, end: 20230110
  4. BUDESONIDE [Concomitant]
     Active Substance: BUDESONIDE
     Indication: Influenza like illness
     Dosage: UNK
     Route: 065
     Dates: start: 20230103, end: 20230110
  5. PREDNISONE [Concomitant]
     Active Substance: PREDNISONE
     Indication: Influenza like illness
     Dosage: UNK
     Route: 065
     Dates: start: 20230103, end: 20230110

REACTIONS (1)
  - Drug reaction with eosinophilia and systemic symptoms [Recovering/Resolving]

NARRATIVE: CASE EVENT DATE: 20230113
